FAERS Safety Report 11226164 (Version 1)
Quarter: 2015Q2

REPORT INFORMATION
  Report Type: Report from Study
  Country: JP (occurrence: JP)
  Receive Date: 20150629
  Receipt Date: 20150629
  Transmission Date: 20150821
  Serious: Yes (Hospitalization)
  Sender: FDA-Public Use
  Company Number: JP-BAYER-2015-358719

PATIENT
  Sex: Female
  Weight: 69 kg

DRUGS (6)
  1. THYRADIN S [Concomitant]
     Active Substance: LEVOTHYROXINE SODIUM
     Dosage: 125 ?G, QD
     Dates: start: 20140713
  2. PYDOXAL [Concomitant]
     Active Substance: PYRIDOXAL
     Dosage: 20 MG, TID
  3. NEXAVAR [Suspect]
     Active Substance: SORAFENIB
     Indication: PAPILLARY THYROID CANCER
     Dosage: 400 MG, BID
     Route: 048
     Dates: start: 20150428, end: 20150511
  4. WARFARIN [Concomitant]
     Active Substance: WARFARIN
     Dosage: 3.5 MG, QD
     Dates: start: 2004, end: 20150602
  5. NORVASC [Concomitant]
     Active Substance: AMLODIPINE BESYLATE
     Dosage: 5 MG, QD
     Dates: start: 20150508
  6. NEXAVAR [Suspect]
     Active Substance: SORAFENIB
     Indication: PAPILLARY THYROID CANCER
     Dosage: 200 MG, BID
     Dates: start: 20150519, end: 20150610

REACTIONS (1)
  - Hepatitis [Recovering/Resolving]

NARRATIVE: CASE EVENT DATE: 20150610
